FAERS Safety Report 15285284 (Version 1)
Quarter: 2018Q3

REPORT INFORMATION
  Report Type: Report from Study
  Country: US (occurrence: US)
  Receive Date: 20180816
  Receipt Date: 20180816
  Transmission Date: 20181010
  Serious: Yes (Other)
  Sender: FDA-Public Use
  Company Number: US-JNJFOC-20170908169

PATIENT
  Sex: Male

DRUGS (11)
  1. IMBRUVICA [Suspect]
     Active Substance: IBRUTINIB
     Indication: CHRONIC LYMPHOCYTIC LEUKAEMIA
     Route: 048
     Dates: start: 20170824, end: 20180412
  2. MULTIVITAMINS [Concomitant]
     Active Substance: VITAMINS
  3. ASPIRIN. [Concomitant]
     Active Substance: ASPIRIN
  4. VITAMIN D3 [Concomitant]
     Active Substance: CHOLECALCIFEROL
  5. IMBRUVICA [Suspect]
     Active Substance: IBRUTINIB
     Indication: CHRONIC LYMPHOCYTIC LEUKAEMIA
     Route: 048
     Dates: start: 20170830
  6. XARELTO [Concomitant]
     Active Substance: RIVAROXABAN
  7. METOPROLOL SUCCINATE. [Concomitant]
     Active Substance: METOPROLOL SUCCINATE
  8. VITAMIN D [Concomitant]
     Active Substance: CHOLECALCIFEROL
  9. CHONDROITIN SULFATE W/GLUCOSAMINE SULFATE [Concomitant]
  10. PROTONIX [Concomitant]
     Active Substance: PANTOPRAZOLE SODIUM
  11. BIFIDOBACTERIUM LACTIS [Concomitant]
     Active Substance: BIFIDOBACTERIUM ANIMALIS LACTIS

REACTIONS (6)
  - Cardiac failure congestive [Unknown]
  - Myalgia [Unknown]
  - Atrial fibrillation [Unknown]
  - Bone pain [Unknown]
  - Arthralgia [Unknown]
  - Nausea [Not Recovered/Not Resolved]
